FAERS Safety Report 18107913 (Version 2)
Quarter: 2020Q3

REPORT INFORMATION
  Report Type: Not Available
  Country: US (occurrence: US)
  Receive Date: 20200803
  Receipt Date: 20200819
  Transmission Date: 20201103
  Serious: No
  Sender: FDA-Public Use
  Company Number: US-NEUROCRINE BIOSCIENCES INC.-2020NBI02628

PATIENT
  Age: 42 Year
  Sex: Male

DRUGS (4)
  1. INGREZZA [Suspect]
     Active Substance: VALBENAZINE
     Indication: TARDIVE DYSKINESIA
     Route: 048
     Dates: start: 20200703, end: 20200715
  2. VRAYLAR [Concomitant]
     Active Substance: CARIPRAZINE
  3. ALPRAZOLAM. [Concomitant]
     Active Substance: ALPRAZOLAM
  4. TOPAMAX [Concomitant]
     Active Substance: TOPIRAMATE

REACTIONS (7)
  - Anxiety [Unknown]
  - Blood glucose increased [Unknown]
  - Thirst [Unknown]
  - Distractibility [Unknown]
  - Hunger [Unknown]
  - Vision blurred [Unknown]
  - Sleep terror [Unknown]

NARRATIVE: CASE EVENT DATE: 20200708
